FAERS Safety Report 6255160-7 (Version None)
Quarter: 2009Q3

REPORT INFORMATION
  Report Type: 
  Country: None (occurrence: None)
  Receive Date: 20090702
  Receipt Date: 20090623
  Transmission Date: 20100115
  Serious: Yes (Hospitalization, Other)
  Sender: FDA-Public Use
  Company Number: PHHY2009FR25580

PATIENT
  Age: 46 Year
  Sex: Female

DRUGS (1)
  1. ACLASTA [Suspect]
     Indication: OSTEOPOROSIS POSTMENOPAUSAL
     Dosage: UNK

REACTIONS (7)
  - C-REACTIVE PROTEIN INCREASED [None]
  - FATIGUE [None]
  - HYPOTENSION [None]
  - INFLAMMATION [None]
  - INFLUENZA LIKE ILLNESS [None]
  - LOOSE TOOTH [None]
  - PAIN IN JAW [None]
